FAERS Safety Report 7948241-0 (Version None)
Quarter: 2011Q4

REPORT INFORMATION
  Report Type: 
  Country: None (occurrence: None)
  Receive Date: 20111125
  Receipt Date: 20111115
  Transmission Date: 20120403
  Serious: Yes (Hospitalization, Other)
  Sender: FDA-Public Use
  Company Number: JPI-P-017224

PATIENT
  Age: 41 Year
  Sex: Female
  Weight: 53.5244 kg

DRUGS (8)
  1. XYREM [Suspect]
     Indication: INSOMNIA
     Dosage: (2.25 GM ONCE OR TWICE NIGHTLY), ORAL, (UNKNOWN), ORAL, (4.5 GM ONCE OR TWICE NIGHTLY), ORAL
     Route: 048
     Dates: start: 20081118
  2. XYREM [Suspect]
     Indication: INSOMNIA
     Dosage: (2.25 GM ONCE OR TWICE NIGHTLY), ORAL, (UNKNOWN), ORAL, (4.5 GM ONCE OR TWICE NIGHTLY), ORAL
     Route: 048
     Dates: start: 20081006
  3. PROPRANOLOL [Concomitant]
  4. SUMATRIPTAN AND NAPROXEN [Concomitant]
  5. EPIDURAL INJECTION FOR BULGING DISC (INJECTION) [Suspect]
     Indication: INTERVERTEBRAL DISC PROTRUSION
     Dates: start: 20110801, end: 20110801
  6. XYREM [Suspect]
     Indication: INSOMNIA
     Dosage: 9 GM (4.5 GM, 2 IN 1 D), ORAL
     Route: 048
  7. ONDANSETRON [Concomitant]
  8. PROCHLORPERAZINE [Concomitant]

REACTIONS (6)
  - INTERVERTEBRAL DISC PROTRUSION [None]
  - HEADACHE [None]
  - MIGRAINE [None]
  - CONDITION AGGRAVATED [None]
  - INTERVERTEBRAL DISC DEGENERATION [None]
  - PAIN [None]
